FAERS Safety Report 9445505 (Version 1)
Quarter: 2013Q3

REPORT INFORMATION
  Report Type: Spontaneous
  Country: US (occurrence: None)
  Receive Date: 20130802
  Receipt Date: 20130802
  Transmission Date: 20140515
  Serious: No
  Sender: FDA-Public Use
  Company Number: OPER20100036

PATIENT
  Age: 46 Year
  Sex: Male

DRUGS (1)
  1. OPANA [Suspect]
     Indication: BACK PAIN
     Dosage: 3 IN 1 D
     Route: 048
     Dates: start: 201001, end: 201002

REACTIONS (3)
  - Drug ineffective [None]
  - Fatigue [None]
  - Sedation [None]
